FAERS Safety Report 4561662-1 (Version None)
Quarter: 2005Q1

REPORT INFORMATION
  Report Type: 
  Country: None (occurrence: None)
  Receive Date: 20050124
  Receipt Date: 20050110
  Transmission Date: 20050727
  Serious: Yes (Hospitalization, Other)
  Sender: FDA-Public Use
  Company Number: 2005001823

PATIENT
  Age: 61 Year
  Sex: Male
  Weight: 127.0072 kg

DRUGS (10)
  1. GEMFIBROZIL [Suspect]
     Indication: BLOOD CHOLESTEROL
     Dosage: 1200 MG (600 MG, 2 IN 1 D), ORAL
     Route: 048
     Dates: end: 20030201
  2. LIPITOR [Suspect]
     Indication: BLOOD CHOLESTEROL
  3. ACCUPRIL [Suspect]
     Indication: ILL-DEFINED DISORDER
  4. INSULIN [Concomitant]
  5. FUROSEMIDE (FUROSEMIDE) [Concomitant]
  6. METOPROLOL TARTRATE [Concomitant]
  7. FISH OIL (FISH OIL) [Concomitant]
  8. IBUPROFEN [Concomitant]
  9. HYDROCODONE (HYDROCODONE) [Concomitant]
  10. RISPERDAL [Concomitant]

REACTIONS (3)
  - CORONARY ARTERY OCCLUSION [None]
  - DRUG EFFECT DECREASED [None]
  - POLYP [None]
